FAERS Safety Report 9643917 (Version 1)
Quarter: 2013Q4

REPORT INFORMATION
  Report Type: Spontaneous
  Country: GB (occurrence: None)
  Receive Date: 20131023
  Receipt Date: 20131023
  Transmission Date: 20140711
  Serious: Yes (Other)
  Sender: FDA-Public Use
  Company Number: AUR-APL-2013-08806

PATIENT
  Age: 14 Year
  Sex: Male

DRUGS (1)
  1. QUETIAPINE [Suspect]
     Indication: BIPOLAR DISORDER

REACTIONS (5)
  - Drug ineffective [None]
  - Product substitution issue [None]
  - Aggression [None]
  - Crying [None]
  - Abnormal behaviour [None]
